FAERS Safety Report 7677326-1 (Version None)
Quarter: 2011Q3

REPORT INFORMATION
  Report Type: 
  Country: None (occurrence: None)
  Receive Date: 20110811
  Receipt Date: 20110803
  Transmission Date: 20111222
  Serious: Yes (Hospitalization)
  Sender: FDA-Public Use
  Company Number: US-BAYER-2010-002709

PATIENT
  Age: 20 Year
  Sex: Female
  Weight: 93.424 kg

DRUGS (2)
  1. YASMIN [Suspect]
     Indication: ABDOMINAL PAIN LOWER
     Dosage: UNK
     Dates: start: 20040101, end: 20090801
  2. DROSPIRENONE AND ETHINYL ESTRADIOL [Suspect]
     Indication: ABDOMINAL PAIN LOWER
     Dosage: UNK
     Dates: start: 20040101, end: 20090801

REACTIONS (3)
  - CHOLELITHIASIS [None]
  - CHOLECYSTITIS CHRONIC [None]
  - GALLBLADDER NON-FUNCTIONING [None]
